FAERS Safety Report 9454762 (Version 1)
Quarter: 2013Q3

REPORT INFORMATION
  Report Type: Report from Study
  Country: BR (occurrence: BR)
  Receive Date: 20130812
  Receipt Date: 20130812
  Transmission Date: 20140515
  Serious: Yes (Hospitalization, Disabling)
  Sender: FDA-Public Use
  Company Number: BR-ABBOTT-13P-020-1129973-00

PATIENT
  Age: 30 Year
  Sex: Female
  Weight: 80 kg

DRUGS (8)
  1. HUMIRA [Suspect]
     Indication: RHEUMATOID ARTHRITIS
     Route: 058
     Dates: start: 20120826
  2. FLUOXETINE [Concomitant]
     Indication: DEPRESSION
     Route: 048
     Dates: start: 200008, end: 20130712
  3. METHOTREXATE [Concomitant]
     Indication: ARTHRITIS
     Route: 030
     Dates: start: 201208
  4. DALMADORM [Concomitant]
     Indication: SLEEP DISORDER THERAPY
     Dosage: AT NIGHT
     Route: 048
     Dates: start: 201208
  5. PAROXETINE [Concomitant]
     Indication: PRODUCT USED FOR UNKNOWN INDICATION
     Route: 048
     Dates: start: 200008
  6. UNKNOWN [Concomitant]
     Indication: NEPHROLITHIASIS
     Route: 048
     Dates: start: 20120904
  7. TYLEX [Concomitant]
     Indication: PAIN
     Route: 048
     Dates: start: 201306
  8. CLONAZEPAM [Concomitant]
     Indication: SLEEP DISORDER THERAPY
     Route: 048
     Dates: start: 20130712

REACTIONS (6)
  - Osteoarthritis [Unknown]
  - Inflammation [Not Recovered/Not Resolved]
  - Poor peripheral circulation [Not Recovered/Not Resolved]
  - Weight decreased [Not Recovered/Not Resolved]
  - Gait disturbance [Unknown]
  - Arthralgia [Unknown]
